FAERS Safety Report 25106112 (Version 1)
Quarter: 2025Q1

REPORT INFORMATION
  Report Type: Spontaneous
  Country: US (occurrence: None)
  Receive Date: 20250321
  Receipt Date: 20250321
  Transmission Date: 20250408
  Serious: Yes (Hospitalization)
  Sender: FDA-CTU
  Company Number: None

PATIENT
  Sex: Female

DRUGS (4)
  1. AMBRISENTAN [Suspect]
     Active Substance: AMBRISENTAN
     Indication: Pulmonary arterial hypertension
     Dosage: FREQUENCY : DAILY;?
     Route: 048
     Dates: start: 20250228
  2. FUROSEMIDE [Concomitant]
     Active Substance: FUROSEMIDE
  3. SILDENAFIL [Concomitant]
     Active Substance: SILDENAFIL
  4. UPTRAVI TAB 1200MCG [Concomitant]

REACTIONS (1)
  - Product use issue [None]
